FAERS Safety Report 6862907-5 (Version None)
Quarter: 2010Q3

REPORT INFORMATION
  Report Type: 
  Country: None (occurrence: None)
  Receive Date: 20100721
  Receipt Date: 20100715
  Transmission Date: 20110219
  Serious: Yes (Life-Threatening)
  Sender: FDA-Public Use
  Company Number: B0665537A

PATIENT
  Sex: Female
  Weight: 2.7 kg

DRUGS (1)
  1. FORTUM [Suspect]
     Indication: PRODUCT USED FOR UNKNOWN INDICATION
     Dosage: 90MG SINGLE DOSE
     Route: 040
     Dates: start: 20080925, end: 20080925

REACTIONS (6)
  - CARDIO-RESPIRATORY ARREST [None]
  - CRYING [None]
  - CYANOSIS [None]
  - HYPOTONIA [None]
  - PALLOR [None]
  - SYNCOPE [None]
